FAERS Safety Report 8077394-1 (Version None)
Quarter: 2012Q1

REPORT INFORMATION
  Report Type: 
  Country: None (occurrence: None)
  Receive Date: 20120127
  Receipt Date: 20120120
  Transmission Date: 20120608
  Serious: Yes (Hospitalization, Other)
  Sender: FDA-Public Use
  Company Number: ES-ABBOTT-11P-144-0883920-00

PATIENT
  Sex: Female

DRUGS (4)
  1. HUMIRA [Suspect]
     Indication: PSORIASIS
     Route: 058
     Dates: start: 20110526, end: 20111020
  2. ISONIAZID [Concomitant]
     Indication: MYCOBACTERIUM TUBERCULOSIS COMPLEX TEST POSITIVE
     Dates: start: 20110430
  3. PRIMIDONE [Concomitant]
     Indication: PETIT MAL EPILEPSY
  4. CYCLOSPORINE [Concomitant]
     Indication: PSORIASIS
     Dosage: 150 MG DAILY
     Dates: start: 20100101, end: 20110601

REACTIONS (8)
  - TUBO-OVARIAN ABSCESS [None]
  - PELVIC INFLAMMATORY DISEASE [None]
  - ILEUS PARALYTIC [None]
  - PSEUDOCYST [None]
  - ADHESION [None]
  - GARDNERELLA INFECTION [None]
  - CORYNEBACTERIUM INFECTION [None]
  - PAPILLOMA VIRAL INFECTION [None]
